FAERS Safety Report 5588606-8 (Version None)
Quarter: 2008Q1

REPORT INFORMATION
  Report Type: 
  Country: None (occurrence: None)
  Receive Date: 20080111
  Receipt Date: 20071231
  Transmission Date: 20080703
  Serious: Yes (Disabling, Other)
  Sender: FDA-Public Use
  Company Number: GB-PFIZER INC-2008000967

PATIENT
  Age: 45 Year
  Sex: Female
  Weight: 65 kg

DRUGS (1)
  1. CHANTIX [Suspect]
     Dosage: TEXT:1MG BID EVERY DAY TDD:2MG
     Route: 048
     Dates: start: 20070907, end: 20071120

REACTIONS (1)
  - DEPRESSION SUICIDAL [None]
